FAERS Safety Report 7218081 (Version 6)
Quarter: 2014Q3

REPORT INFORMATION
  Report Type: Report from Study
  Country: US (occurrence: US)
  Receive Date: 20091215
  Receipt Date: 20140710
  Transmission Date: 20150326
  Serious: Yes (Other)
  Sender: FDA-Public Use
  Company Number: US-ELI_LILLY_AND_COMPANY-US200912000582

PATIENT
  Sex: Female

DRUGS (17)
  1. CALCIUM [Concomitant]
     Active Substance: CALCIUM
     Dates: end: 200907
  2. FLONASE [Concomitant]
     Active Substance: FLUTICASONE PROPIONATE
     Dosage: UNK, EACH MORNING
     Route: 045
  3. SINGULAIR [Concomitant]
     Active Substance: MONTELUKAST SODIUM
     Dosage: 10 MG, DAILY (1/D)
  4. POTASSIUM [Concomitant]
     Active Substance: POTASSIUM
     Dosage: 10 MEQ, 3/D
  5. VASOTEC [Concomitant]
     Active Substance: ENALAPRIL MALEATE
     Dosage: 5 MG, DAILY (1/D)
  6. PATADAY [Concomitant]
     Active Substance: OLOPATADINE HYDROCHLORIDE
     Dosage: UNK, AS NEEDED
     Route: 047
  7. FUROSEMIDE. [Concomitant]
     Active Substance: FUROSEMIDE
     Dosage: 40 MG, UNK
  8. CENTRUM SILVER /01292501/ [Concomitant]
  9. TERIPARATIDE [Suspect]
     Active Substance: TERIPARATIDE
     Indication: OSTEOPOROSIS
     Dosage: 20 UG, QD
     Route: 065
  10. ZOCOR [Concomitant]
     Active Substance: SIMVASTATIN
     Dosage: 10 MG, DAILY (1/D)
  11. TERIPARATIDE [Suspect]
     Active Substance: TERIPARATIDE
     Dosage: 20 UG, QD
     Route: 065
  12. PREDNISONE /00044701/ [Concomitant]
     Dosage: 1 DROP, 3/D
     Route: 047
  13. PROTONIX [Concomitant]
     Active Substance: PANTOPRAZOLE SODIUM
     Dosage: 40 MG, DAILY (1/D)
  14. ALLEGRA [Concomitant]
     Active Substance: FEXOFENADINE HYDROCHLORIDE
     Dosage: 60 MG, DAILY (1/D)
  15. ASTELIN [Concomitant]
     Active Substance: AZELASTINE HYDROCHLORIDE
     Dosage: 1 PUFF, EACH EVENING
     Route: 045
  16. ADVAIR HFA [Concomitant]
     Active Substance: FLUTICASONE PROPIONATE\SALMETEROL XINAFOATE
     Dosage: 250 MG, 2/D
  17. TERIPARATIDE [Suspect]
     Active Substance: TERIPARATIDE
     Dosage: 20 UG, QD
     Route: 065

REACTIONS (20)
  - Pain in extremity [Unknown]
  - Extrasystoles [Unknown]
  - Visual impairment [Unknown]
  - Corneal degeneration [Unknown]
  - Sudden onset of sleep [Unknown]
  - Sleep disorder [Unknown]
  - Cardiac disorder [Unknown]
  - Dizziness [Unknown]
  - Dysstasia [Unknown]
  - Glaucoma [Unknown]
  - Fatigue [Not Recovered/Not Resolved]
  - Gastrooesophageal reflux disease [Unknown]
  - Pain in jaw [Unknown]
  - Joint swelling [Unknown]
  - Muscle spasms [Unknown]
  - Muscle spasms [Not Recovered/Not Resolved]
  - Injection site bruising [Unknown]
  - Asthma [Unknown]
  - Arthralgia [Not Recovered/Not Resolved]
  - Asthenia [Unknown]

NARRATIVE: CASE EVENT DATE: 2009
